FAERS Safety Report 5427377-2 (Version None)
Quarter: 2007Q3

REPORT INFORMATION
  Report Type: 
  Country: None (occurrence: None)
  Receive Date: 20070823
  Receipt Date: 20070809
  Transmission Date: 20080115
  Serious: Yes (Hospitalization)
  Sender: FDA-Public Use
  Company Number: 8026093

PATIENT
  Age: 38 Year
  Sex: Female

DRUGS (4)
  1. KEPPRA [Suspect]
     Indication: EPILEPSY
     Dosage: 1000 MG 2/D PO
     Route: 048
  2. KEPPRA [Suspect]
     Indication: EPILEPSY
     Dosage: 1500 MG /D PO
     Route: 048
  3. LAMICTAL [Concomitant]
  4. URBANYL [Concomitant]

REACTIONS (10)
  - AMNESIA [None]
  - CONDITION AGGRAVATED [None]
  - CONFUSIONAL STATE [None]
  - CONVULSION [None]
  - FATIGUE [None]
  - FEELING COLD [None]
  - HEAD INJURY [None]
  - HYPOTENSION [None]
  - POSTICTAL STATE [None]
  - WOUND [None]
